FAERS Safety Report 10234179 (Version 2)
Quarter: 2014Q4

REPORT INFORMATION
  Report Type: Spontaneous
  Country: GB (occurrence: GB)
  Receive Date: 20140612
  Receipt Date: 20141121
  Transmission Date: 20150528
  Serious: Yes (Other)
  Sender: FDA-Public Use
  Company Number: GB-GLAXOSMITHKLINE-B1002995A

PATIENT
  Sex: Male

DRUGS (1)
  1. NIQUITIN [Suspect]
     Active Substance: NICOTINE
     Indication: EX-TOBACCO USER
     Route: 002

REACTIONS (2)
  - Dependence [Unknown]
  - Product physical issue [Unknown]
